FAERS Safety Report 23578308 (Version 3)
Quarter: 2024Q2

REPORT INFORMATION
  Report Type: Spontaneous
  Country: DE (occurrence: DE)
  Receive Date: 20240229
  Receipt Date: 20240517
  Transmission Date: 20240715
  Serious: Yes (Life-Threatening, Hospitalization, Other)
  Sender: FDA-Public Use
  Company Number: DE-MLMSERVICE-20240209-4828700-1

PATIENT
  Age: 66 Year
  Sex: Male

DRUGS (3)
  1. PANTOPRAZOLE [Suspect]
     Active Substance: PANTOPRAZOLE
     Indication: Product used for unknown indication
     Dosage: STANDARD DOSE
     Route: 065
     Dates: end: 2022
  2. INCLISIRAN [Suspect]
     Active Substance: INCLISIRAN
     Indication: Myopathy
     Dosage: UNK
     Route: 058
     Dates: start: 202210
  3. INCLISIRAN [Suspect]
     Active Substance: INCLISIRAN
     Indication: Type IIa hyperlipidaemia

REACTIONS (4)
  - Condition aggravated [Recovered/Resolved]
  - Hepatic fibrosis [Recovering/Resolving]
  - Drug-induced liver injury [Recovering/Resolving]
  - Disease progression [Recovering/Resolving]

NARRATIVE: CASE EVENT DATE: 20221001
